FAERS Safety Report 4658613-8 (Version None)
Quarter: 2005Q2

REPORT INFORMATION
  Report Type: 
  Country: None (occurrence: None)
  Receive Date: 20050511
  Receipt Date: 20041203
  Transmission Date: 20051028
  Serious: Yes (Hospitalization)
  Sender: FDA-Public Use
  Company Number: GB-GLAXOSMITHKLINE-B0359409A

PATIENT
  Sex: Female

DRUGS (1)
  1. PAROXETINE HCL [Suspect]
     Route: 065

REACTIONS (20)
  - AGITATION [None]
  - ANXIETY [None]
  - BRUXISM [None]
  - CHILLS [None]
  - COMPLETED SUICIDE [None]
  - DEPRESSED MOOD [None]
  - DEPRESSION [None]
  - DRUG WITHDRAWAL SYNDROME [None]
  - DYSKINESIA [None]
  - EMOTIONAL DISTRESS [None]
  - FLIGHT OF IDEAS [None]
  - HYPOMANIA [None]
  - NEGATIVE THOUGHTS [None]
  - ORAL DISCOMFORT [None]
  - PUPILS UNEQUAL [None]
  - RESTLESSNESS [None]
  - SEROTONIN SYNDROME [None]
  - SLEEP DISORDER [None]
  - SUICIDAL IDEATION [None]
  - TREMOR [None]
